FAERS Safety Report 4575082-7 (Version None)
Quarter: 2005Q1

REPORT INFORMATION
  Report Type: 
  Country: None (occurrence: None)
  Receive Date: 20050208
  Receipt Date: 20050120
  Transmission Date: 20050727
  Serious: Yes (Hospitalization, Other)
  Sender: FDA-Public Use
  Company Number: CN-GLAXOSMITHKLINE-B0365849A

PATIENT
  Sex: Female
  Weight: 24 kg

DRUGS (1)
  1. ZENTAL [Suspect]
     Indication: INFECTION PARASITIC
     Dosage: 400MG SINGLE DOSE
     Route: 048
     Dates: start: 20050118, end: 20050118

REACTIONS (10)
  - ABNORMAL BEHAVIOUR [None]
  - APHASIA [None]
  - COORDINATION ABNORMAL [None]
  - DYSSTASIA [None]
  - ELECTROENCEPHALOGRAM ABNORMAL [None]
  - EYE MOVEMENT DISORDER [None]
  - MENTAL DISORDER [None]
  - PSYCHOTIC DISORDER [None]
  - UNRESPONSIVE TO VERBAL STIMULI [None]
  - URINARY INCONTINENCE [None]
